FAERS Safety Report 13164673 (Version 1)
Quarter: 2017Q1

REPORT INFORMATION
  Report Type: Spontaneous
  Country: MA (occurrence: MA)
  Receive Date: 20170130
  Receipt Date: 20170130
  Transmission Date: 20170428
  Serious: Yes (Other)
  Sender: FDA-Public Use
  Company Number: MA-MYLANLABS-2017M1004732

PATIENT

DRUGS (2)
  1. FLUOROURACIL. [Suspect]
     Active Substance: FLUOROURACIL
     Indication: METAPLASTIC BREAST CARCINOMA
     Dosage: 400MG/M2 PER DAY FOR 3 DAYS, EVERY THREE WEEKS
     Route: 050
  2. CISPLATIN. [Suspect]
     Active Substance: CISPLATIN
     Indication: METAPLASTIC BREAST CARCINOMA
     Dosage: 75MG/M2 AS 1 HOUR; ON DAY 1, EVERY 3 WEEKS
     Route: 041

REACTIONS (2)
  - Febrile neutropenia [Recovering/Resolving]
  - Vomiting [Recovering/Resolving]
